FAERS Safety Report 14720224 (Version 1)
Quarter: 2018Q2

REPORT INFORMATION
  Report Type: Spontaneous
  Country: DE (occurrence: DE)
  Receive Date: 20180405
  Receipt Date: 20180405
  Transmission Date: 20180711
  Serious: Yes (Other)
  Sender: FDA-Public Use
  Company Number: DE-MYLANLABS-2018M1020445

PATIENT
  Age: 74 Year
  Sex: Female

DRUGS (4)
  1. INDOMETACIN [Suspect]
     Active Substance: INDOMETHACIN
     Indication: PROPHYLAXIS
     Dosage: 200 MG, QD
  2. CAFFEINE. [Suspect]
     Active Substance: CAFFEINE
     Indication: PROPHYLAXIS
     Dosage: UNK
     Route: 048
  3. TOPIRAMATE. [Suspect]
     Active Substance: TOPIRAMATE
     Indication: HEADACHE
     Dosage: DAILY DOSE: 250 MG MILLIGRAM(S) EVERY DAY
     Route: 048
  4. LITHIUM. [Suspect]
     Active Substance: LITHIUM
     Indication: PROPHYLAXIS
     Dosage: DAILY DOSE: 900 MG MILLIGRAM(S) EVERY DAY
     Route: 048

REACTIONS (3)
  - Off label use [Unknown]
  - Cognitive disorder [Unknown]
  - Drug ineffective [Unknown]
